FAERS Safety Report 4569510-0 (Version None)
Quarter: 2005Q1

REPORT INFORMATION
  Report Type: 
  Country: None (occurrence: None)
  Receive Date: 20050201
  Receipt Date: 20050120
  Transmission Date: 20050727
  Serious: Yes (Life-Threatening, Hospitalization)
  Sender: FDA-Public Use
  Company Number: 2005017716

PATIENT
  Age: 60 Year

DRUGS (6)
  1. NIFEDIPINE [Suspect]
     Indication: MYOCARDIAL ISCHAEMIA
     Dosage: ORAL
     Route: 048
     Dates: end: 20040218
  2. ATORVASTATIN CALCIUM [Concomitant]
  3. METFORMIN HCL [Concomitant]
  4. ALLOPURINOL [Concomitant]
  5. OMEPRAZOLE [Concomitant]
  6. ATENOLOL (ATANOLOL) [Concomitant]

REACTIONS (4)
  - ASCITES [None]
  - EOSINOPHIL COUNT INCREASED [None]
  - HEPATIC NECROSIS [None]
  - HEPATITIS [None]
